FAERS Safety Report 4770869-X (Version None)
Quarter: 2005Q3

REPORT INFORMATION
  Report Type: 
  Country: None (occurrence: None)
  Receive Date: 20050914
  Receipt Date: 20050831
  Transmission Date: 20060218
  Serious: Yes (Life-Threatening, Other)
  Sender: FDA-Public Use
  Company Number: S05-UKI-03317-01

PATIENT
  Age: 41 Year
  Sex: Female

DRUGS (4)
  1. CIPRALEX                     (ESCITALOPRAM) [Suspect]
     Indication: DEPRESSION
     Dosage: 10 MG QD PO
     Route: 048
     Dates: end: 20050815
  2. ZUMESTON [Concomitant]
  3. LORMETAZEPAM [Concomitant]
  4. DIAZEPAM [Concomitant]

REACTIONS (2)
  - ABDOMINAL PAIN UPPER [None]
  - GASTROINTESTINAL HAEMORRHAGE [None]
